FAERS Safety Report 4475719-7 (Version None)
Quarter: 2004Q3

REPORT INFORMATION
  Report Type: 
  Country: None (occurrence: None)
  Receive Date: 20040923
  Receipt Date: 20040819
  Transmission Date: 20050211
  Serious: No
  Sender: FDA-Public Use
  Company Number: USA040670873

PATIENT
  Age: 43 Year
  Sex: Female
  Weight: 98 kg

DRUGS (8)
  1. FORTEO [Suspect]
     Indication: RIB FRACTURE
     Dates: start: 20040615, end: 20040707
  2. CALCIUM [Concomitant]
  3. ALBUTEROL [Concomitant]
  4. DARVOCET-N 100 [Concomitant]
  5. NEXIUM [Concomitant]
  6. LEXAPRO [Concomitant]
  7. NEURONTIN [Concomitant]
  8. TUMS (CALCIUM CARBONATE) [Concomitant]

REACTIONS (6)
  - ASTHENIA [None]
  - CONSTIPATION [None]
  - DIZZINESS [None]
  - HEART RATE INCREASED [None]
  - INFLUENZA LIKE ILLNESS [None]
  - PAIN [None]
